FAERS Safety Report 9479014 (Version 2)
Quarter: 2013Q4

REPORT INFORMATION
  Report Type: Spontaneous
  Country: US (occurrence: US)
  Receive Date: 20130827
  Receipt Date: 20131009
  Transmission Date: 20140711
  Serious: Yes (Hospitalization, Other)
  Sender: FDA-Public Use
  Company Number: US-MPIJNJ-2013MPI000129

PATIENT
  Age: 66 Year
  Sex: Male
  Weight: 84.82 kg

DRUGS (14)
  1. VELCADE [Suspect]
     Indication: AMYLOIDOSIS
     Dosage: 1.5 MG/M2, UNK
     Route: 042
     Dates: start: 20120111
  2. VELCADE [Suspect]
     Dosage: 2.9 MG, Q2WEEKS
     Route: 058
     Dates: end: 20130726
  3. CYTOXAN [Suspect]
     Indication: AMYLOIDOSIS
     Dosage: 150 MG/M2, UNK
     Route: 042
     Dates: start: 20120111
  4. DEXAMETHASONE [Suspect]
     Indication: AMYLOIDOSIS
     Dosage: 40 MG, 1/WEEK
     Route: 048
     Dates: start: 20120111
  5. FLOMAX                             /00889901/ [Concomitant]
     Dosage: 0.4 MG, QD
     Route: 048
  6. COMPAZINE                          /00013302/ [Concomitant]
     Indication: NAUSEA
     Dosage: 10 MG, PRN
     Route: 048
  7. COMPAZINE                          /00013302/ [Concomitant]
     Indication: VOMITING
  8. MIRALAX [Concomitant]
     Indication: CONSTIPATION
     Dosage: 17 MG, PRN
     Route: 048
  9. LASIX                              /00032601/ [Concomitant]
     Dosage: 10 MG, QOD
     Route: 048
  10. VITAMIN D2 [Concomitant]
     Dosage: UNK UNK, MONTHLY
     Route: 048
  11. COLACE [Concomitant]
     Dosage: 100 MG, BID
     Route: 048
  12. ASPIRIN [Concomitant]
     Dosage: 81 MG, QD
     Route: 048
  13. NORVASC [Concomitant]
     Dosage: 5 MG, QD
     Route: 048
  14. NORCO [Concomitant]
     Indication: PAIN
     Dosage: UNK, PRN

REACTIONS (2)
  - Pancreatitis acute [Recovered/Resolved]
  - Off label use [Unknown]
